FAERS Safety Report 8809452 (Version 1)
Quarter: 2012Q4

REPORT INFORMATION
  Report Type: 
  Country: CH (occurrence: CH)
  Receive Date: 20120926
  Receipt Date: 20120926
  Transmission Date: 20130627
  Serious: Yes (Congenital Anomaly, Other)
  Sender: FDA-Public Use
  Company Number: CH-ROCHE-1137074

PATIENT

DRUGS (5)
  1. RIVOTRIL [Suspect]
     Indication: EPILEPSY
     Route: 064
     Dates: start: 201201
  2. ROCEPHIN [Suspect]
     Indication: PRODUCT USED FOR UNKNOWN INDICATION
     Route: 064
     Dates: start: 201201, end: 201201
  3. ACYCLOVIR [Suspect]
     Indication: ENCEPHALITIS HERPES
     Route: 064
     Dates: start: 201201
  4. LAMICTAL [Suspect]
     Indication: EPILEPSY
     Route: 064
     Dates: start: 201201
  5. AMOXICILLINE [Suspect]
     Indication: PRODUCT USED FOR UNKNOWN INDICATION
     Route: 064
     Dates: start: 201201, end: 201201

REACTIONS (2)
  - Maternal exposure timing unspecified [Unknown]
  - Transposition of the great vessels [Unknown]
